FAERS Safety Report 20306274 (Version 1)
Quarter: 2022Q1

REPORT INFORMATION
  Report Type: Spontaneous
  Country: CN (occurrence: None)
  Receive Date: 20220106
  Receipt Date: 20220106
  Transmission Date: 20220423
  Serious: Yes (Hospitalization)
  Sender: FDA-Public Use
  Company Number: 2021A904137

PATIENT
  Age: 73 Year
  Sex: Male
  Weight: 70 kg

DRUGS (5)
  1. IMFINZI [Suspect]
     Active Substance: DURVALUMAB
     Dosage: 1000MG; FREQUENCY: EVERY 21 DAYS
     Route: 042
     Dates: start: 20210922, end: 20210922
  2. IMFINZI [Suspect]
     Active Substance: DURVALUMAB
     Dosage: 1000MG; FREQUENCY: EVERY 21 DAYS
     Route: 042
  3. ETOPOSIDE [Concomitant]
     Active Substance: ETOPOSIDE
  4. CARBOPLATIN [Concomitant]
     Active Substance: CARBOPLATIN
  5. CISPLATIN [Concomitant]
     Active Substance: CISPLATIN

REACTIONS (1)
  - Myocardial necrosis marker increased [Recovering/Resolving]

NARRATIVE: CASE EVENT DATE: 20211101
